FAERS Safety Report 19469529 (Version 2)
Quarter: 2022Q1

REPORT INFORMATION
  Report Type: Spontaneous
  Country: IN (occurrence: IN)
  Receive Date: 20210628
  Receipt Date: 20220204
  Transmission Date: 20220423
  Serious: Yes (Other)
  Sender: FDA-Public Use
  Company Number: IN-UCBSA-2021030438

PATIENT
  Age: 8 Year
  Sex: Male

DRUGS (7)
  1. LEVETIRACETAM [Suspect]
     Active Substance: LEVETIRACETAM
     Indication: Acute disseminated encephalomyelitis
     Dosage: UNKNOWN DOSE
  2. PHENOBARBITAL [Concomitant]
     Active Substance: PHENOBARBITAL
     Indication: Acute disseminated encephalomyelitis
     Dosage: UNKNOWN DOSE
  3. PHENYTOIN [Concomitant]
     Active Substance: PHENYTOIN
     Indication: Acute disseminated encephalomyelitis
     Dosage: UNKNOWN DOSE
  4. MIDAZOLAM [Concomitant]
     Active Substance: MIDAZOLAM
     Indication: Acute disseminated encephalomyelitis
     Dosage: UNKNOWN DOSE
  5. METHYLPREDNISOLONE [Concomitant]
     Active Substance: METHYLPREDNISOLONE
     Indication: Acute disseminated encephalomyelitis
     Dosage: 30 MG/KG/DAY
  6. MANNITOL [Concomitant]
     Active Substance: MANNITOL
     Indication: Acute disseminated encephalomyelitis
     Dosage: UNKNOWN DOSE
  7. ISOPRINOSINE [Concomitant]
     Active Substance: INOSINE PRANOBEX
     Indication: Product used for unknown indication
     Dosage: UNKNOWN DOSE

REACTIONS (3)
  - Neurological decompensation [Unknown]
  - Apallic syndrome [Unknown]
  - Product use in unapproved indication [Unknown]
